APPROVED DRUG PRODUCT: MINOXIDIL EXTRA STRENGTH (FOR MEN)
Active Ingredient: MINOXIDIL
Strength: 5%
Dosage Form/Route: SOLUTION;TOPICAL
Application: A075619 | Product #001
Applicant: AVACOR PRODUCTS LLC
Approved: Nov 17, 2000 | RLD: No | RS: No | Type: DISCN